FAERS Safety Report 4846833-9 (Version None)
Quarter: 2005Q4

REPORT INFORMATION
  Report Type: 
  Country: None (occurrence: None)
  Receive Date: 20051207
  Receipt Date: 20051125
  Transmission Date: 20060501
  Serious: Yes (Other)
  Sender: FDA-Public Use
  Company Number: PHBS2005YU17443

PATIENT
  Age: 37 Year
  Sex: Male
  Weight: 70 kg

DRUGS (1)
  1. LEPONEX [Suspect]
     Indication: SCHIZOPHRENIA, PARANOID TYPE
     Dosage: 100 MG/D
     Route: 048
     Dates: start: 20040201, end: 20050401

REACTIONS (5)
  - HEPATIC ENZYME ABNORMAL [None]
  - HYPERKALAEMIA [None]
  - METABOLIC SYNDROME [None]
  - SEDATION [None]
  - WEIGHT INCREASED [None]
